FAERS Safety Report 4335564-X (Version None)
Quarter: 2004Q2

REPORT INFORMATION
  Report Type: 
  Country: None (occurrence: None)
  Receive Date: 20040406
  Receipt Date: 20040322
  Transmission Date: 20050107
  Serious: Yes (Hospitalization)
  Sender: FDA-Public Use
  Company Number: 193412

PATIENT
  Age: 41 Year
  Sex: Female
  Weight: 154.223 kg

DRUGS (18)
  1. AVONEX [Suspect]
     Indication: MULTIPLE SCLEROSIS
     Dosage: 30 MCG QW IM
     Route: 030
     Dates: start: 19980101, end: 20030801
  2. AVONEX [Suspect]
     Indication: MULTIPLE SCLEROSIS
     Dosage: 30 MCG QW IM
     Route: 030
     Dates: start: 20030801
  3. ACIPHEX [Concomitant]
  4. PROVIGIL [Concomitant]
  5. MICRO-K [Concomitant]
  6. CLARINEX [Concomitant]
  7. SINGULAIR [Concomitant]
  8. ZOLOFT [Concomitant]
  9. LASIX [Concomitant]
  10. BACLOFEN [Concomitant]
  11. PARAFORTE [Concomitant]
  12. ZOCOR [Concomitant]
  13. SYNTHROID [Concomitant]
  14. URECHOLINE [Concomitant]
  15. ACTONEL [Concomitant]
  16. ASTELIN [Concomitant]
  17. PROVENTIL [Concomitant]
  18. TYLENOL W/ CODEINE NO. 3 [Concomitant]

REACTIONS (3)
  - HYPOTHYROIDISM [None]
  - INFLUENZA LIKE ILLNESS [None]
  - PAPILLARY THYROID CANCER [None]
